FAERS Safety Report 18817463 (Version 1)
Quarter: 2021Q1

REPORT INFORMATION
  Report Type: Report from Study
  Country: RU (occurrence: RU)
  Receive Date: 20210201
  Receipt Date: 20210201
  Transmission Date: 20210419
  Serious: Yes (Other)
  Sender: FDA-Public Use
  Company Number: RU-IPSEN BIOPHARMACEUTICALS, INC.-2021-02513

PATIENT

DRUGS (6)
  1. SOMATULINE AUTOGEL [Suspect]
     Active Substance: LANREOTIDE ACETATE
     Indication: OFF LABEL USE
  2. OCTREOTIDE. [Concomitant]
     Active Substance: OCTREOTIDE
     Dosage: USED IN REGIMEN OF SUBCUTANEOUS INJECTIONS OR CONTINUOUS SUBCUTANEOUS INFUSION WITH USE OF PUMPS
  3. SOMATULINE [Suspect]
     Active Substance: LANREOTIDE ACETATE
     Indication: CONGENITAL HYPERINSULINAEMIC HYPOGLYCAEMIA
     Route: 065
  4. DIAZOXIDE [Concomitant]
     Active Substance: DIAZOXIDE
     Indication: HYPERINSULINISM
     Dosage: GRADUAL DOSE ESCALATION TO 15?20 MG/KG/DAY FOR AT LEAST 7 DAYS.
  5. SOMATULINE [Suspect]
     Active Substance: LANREOTIDE ACETATE
     Indication: OFF LABEL USE
  6. SOMATULINE AUTOGEL [Suspect]
     Active Substance: LANREOTIDE ACETATE
     Indication: CONGENITAL HYPERINSULINAEMIC HYPOGLYCAEMIA
     Route: 065

REACTIONS (4)
  - Hyperglycaemia [Unknown]
  - Drug effective for unapproved indication [Unknown]
  - Transaminases increased [Recovered/Resolved]
  - Off label use [Unknown]
